FAERS Safety Report 23471998 (Version 3)
Quarter: 2024Q1

REPORT INFORMATION
  Report Type: Spontaneous
  Country: US (occurrence: None)
  Receive Date: 20240202
  Receipt Date: 20240320
  Transmission Date: 20240409
  Serious: Yes (Hospitalization, Other)
  Sender: FDA-Public Use
  Company Number: 2024A020497

PATIENT
  Sex: Female

DRUGS (1)
  1. SAPHNELO [Suspect]
     Active Substance: ANIFROLUMAB\ANIFROLUMAB-FNIA
     Dates: start: 20231116

REACTIONS (16)
  - Drug interaction [Unknown]
  - Fatigue [Unknown]
  - Headache [Unknown]
  - Photopsia [Unknown]
  - Blindness transient [Unknown]
  - Palpitations [Unknown]
  - Anxiety [Unknown]
  - Blood pressure decreased [Not Recovered/Not Resolved]
  - Hypoaesthesia [Unknown]
  - Lethargy [Unknown]
  - Dyspnoea [Unknown]
  - Blood pressure abnormal [Unknown]
  - Tooth infection [Unknown]
  - Inflammation [Unknown]
  - Blood potassium decreased [Unknown]
  - Dizziness [Unknown]
